FAERS Safety Report 12468890 (Version 5)
Quarter: 2016Q3

REPORT INFORMATION
  Report Type: Report from Study
  Country: CA (occurrence: CA)
  Receive Date: 20160615
  Receipt Date: 20160715
  Transmission Date: 20161109
  Serious: Yes (Hospitalization)
  Sender: FDA-Public Use
  Company Number: CA-ABBVIE-16P-028-1650069-00

PATIENT
  Age: 51 Year
  Sex: Male
  Weight: 86.9 kg

DRUGS (25)
  1. DILAUDID [Concomitant]
     Active Substance: HYDROMORPHONE HYDROCHLORIDE
     Indication: FLANK PAIN
     Dosage: EVERY 1 HOUR
     Route: 048
     Dates: start: 20160425
  2. VENLAFAXINE [Concomitant]
     Active Substance: VENLAFAXINE HYDROCHLORIDE
     Route: 048
     Dates: start: 20160421, end: 20160424
  3. TAMSULOSIN [Concomitant]
     Active Substance: TAMSULOSIN
     Indication: FLANK PAIN
     Route: 048
     Dates: start: 20160410
  4. DEXAMETHASONE. [Concomitant]
     Active Substance: DEXAMETHASONE
     Indication: PROPHYLAXIS OF NAUSEA AND VOMITING
     Dosage: 8 HOURS POST CHEMO
     Route: 048
     Dates: start: 20160505
  5. OXAZEPAM. [Concomitant]
     Active Substance: OXAZEPAM
     Indication: INSOMNIA
     Dosage: AT BEDTIME
     Route: 048
     Dates: start: 2010
  6. ALLOPURINOL. [Concomitant]
     Active Substance: ALLOPURINOL
     Indication: PROPHYLAXIS
     Route: 048
     Dates: start: 20160506
  7. LYRICA [Concomitant]
     Active Substance: PREGABALIN
     Indication: FLANK PAIN
     Route: 048
     Dates: start: 20160417
  8. DEXAMETHASONE. [Concomitant]
     Active Substance: DEXAMETHASONE
     Dosage: PRE CHEMO
     Route: 048
     Dates: start: 20160505
  9. APREPITANT. [Concomitant]
     Active Substance: APREPITANT
     Indication: PROPHYLAXIS OF NAUSEA AND VOMITING
     Dates: start: 20160526, end: 20160526
  10. DOXORUBICIN [Suspect]
     Active Substance: DOXORUBICIN
     Indication: B-CELL LYMPHOMA
     Dosage: MOST RECENT DOSE (105 MG) ON 26 MAY 2016 AT 14:45
     Route: 042
     Dates: start: 20160506
  11. METOCHLOPRAMIDE [Concomitant]
     Active Substance: METOCLOPRAMIDE HYDROCHLORIDE
     Indication: NAUSEA
     Dosage: EVERY 4 HOURS
     Route: 048
     Dates: start: 20160508
  12. CYCLOPHOSPHAMIDE. [Suspect]
     Active Substance: CYCLOPHOSPHAMIDE
     Indication: B-CELL LYMPHOMA
     Dosage: MOST RECENT DOSE (1575 MG) ON 26 MAY 2016 AT 15:15
     Route: 042
     Dates: start: 20160506
  13. VENLAFAXINE [Concomitant]
     Active Substance: VENLAFAXINE HYDROCHLORIDE
     Indication: DEPRESSION
     Route: 048
     Dates: start: 20160421
  14. ONDANSETRON [Concomitant]
     Active Substance: ONDANSETRON
     Indication: PROPHYLAXIS OF NAUSEA AND VOMITING
     Dosage: 30 MIN PRE CHEMO; 8 HR POST CHEMO
     Route: 048
     Dates: start: 20160505
  15. GRAVOL [Concomitant]
     Active Substance: DIMENHYDRINATE
     Indication: NAUSEA
     Dates: start: 20160506
  16. VENETOCLAX [Suspect]
     Active Substance: VENETOCLAX
     Indication: B-CELL LYMPHOMA
     Dosage: MOST RECENT DOSE (800 MG) ON 03 JUN 2016
     Route: 048
     Dates: start: 20160509
  17. RITUXIMAB [Suspect]
     Active Substance: RITUXIMAB
     Indication: B-CELL LYMPHOMA
     Dosage: MOST RECENT DOSE (787 MG)PRIOR TO THE ONSET OF THE EVENT WAS 26 MAY 2016
     Route: 042
     Dates: start: 20160505
  18. VINCRISTINE [Suspect]
     Active Substance: VINCRISTINE
     Indication: B-CELL LYMPHOMA
     Dosage: RECENT DOSE (2 MG) ON 26 MAY 2016 AT 15:00
     Route: 042
     Dates: start: 20160506
  19. PREDNISONE. [Suspect]
     Active Substance: PREDNISONE
     Indication: B-CELL LYMPHOMA
     Dosage: MOST RECENT DOSE (100 MG) ON 30 MAY 2016
     Route: 048
     Dates: start: 20160505
  20. TYLENOL EXTRA STRENGTH [Concomitant]
     Active Substance: ACETAMINOPHEN
     Indication: MIGRAINE
     Dosage: 1-2 EVERY 6 HR
     Route: 048
     Dates: start: 2013
  21. TAMSULOSIN [Concomitant]
     Active Substance: TAMSULOSIN
     Indication: DYSURIA
  22. DALTEPARIN [Concomitant]
     Active Substance: DALTEPARIN
     Indication: THROMBOSIS PROPHYLAXIS
     Route: 058
     Dates: start: 20160410, end: 20160510
  23. NEUPOGEN [Concomitant]
     Active Substance: FILGRASTIM
     Indication: PROPHYLAXIS
     Dates: start: 20160510, end: 20160514
  24. FENTANYL - B.BRAUN [Concomitant]
     Indication: FLANK PAIN
     Dosage: UG
     Dates: start: 20160425
  25. SENNOSIDES A+B [Concomitant]
     Active Substance: SENNOSIDES A AND B
     Indication: CONSTIPATION PROPHYLAXIS
     Dosage: 1-2 BID
     Route: 048
     Dates: start: 20160410

REACTIONS (2)
  - Pancreatitis [Recovering/Resolving]
  - Pneumonia [Recovered/Resolved]

NARRATIVE: CASE EVENT DATE: 20160604
